FAERS Safety Report 14628155 (Version 1)
Quarter: 2018Q1

REPORT INFORMATION
  Report Type: Spontaneous
  Country: US (occurrence: US)
  Receive Date: 20180312
  Receipt Date: 20180312
  Transmission Date: 20180509
  Serious: No
  Sender: FDA-Public Use
  Company Number: US-ALLERGAN-1771533US

PATIENT
  Sex: Female

DRUGS (5)
  1. PLETAL [Concomitant]
     Active Substance: CILOSTAZOL
     Indication: ARTERIAL DISORDER
     Dosage: UNK
     Route: 065
  2. ESTRACE [Suspect]
     Active Substance: ESTRADIOL
     Indication: VULVOVAGINAL PRURITUS
     Dosage: UNK
     Route: 067
  3. PLAVIX [Concomitant]
     Active Substance: CLOPIDOGREL BISULFATE
     Indication: ARTERIAL DISORDER
     Dosage: UNK
     Route: 065
  4. VASELINE PURE [Concomitant]
     Active Substance: PETROLATUM
     Dosage: UNK
     Route: 065
  5. VAGISIL ANTI ITCH ORIGINAL STRENGTH [Concomitant]
     Active Substance: BENZOCAINE\RESORCINOL
     Indication: VULVOVAGINAL PRURITUS
     Dosage: UNK
     Route: 065

REACTIONS (10)
  - Vulvovaginal pruritus [Not Recovered/Not Resolved]
  - Inappropriate schedule of drug administration [Unknown]
  - Vaginal oedema [Not Recovered/Not Resolved]
  - Feeling abnormal [Not Recovered/Not Resolved]
  - Off label use [Unknown]
  - Drug ineffective [Unknown]
  - Erythema [Not Recovered/Not Resolved]
  - Vulvovaginal pain [Not Recovered/Not Resolved]
  - Vulvovaginal burning sensation [Not Recovered/Not Resolved]
  - Wrong technique in product usage process [Unknown]
